FAERS Safety Report 10031783 (Version 2)
Quarter: 2014Q2

REPORT INFORMATION
  Report Type: Spontaneous
  Country: JP (occurrence: JP)
  Receive Date: 20140324
  Receipt Date: 20140403
  Transmission Date: 20141212
  Serious: Yes (Other)
  Sender: FDA-Public Use
  Company Number: JP-ROCHE-1368795

PATIENT
  Age: 49 Year
  Sex: Male

DRUGS (83)
  1. ARTIST [Concomitant]
     Route: 048
     Dates: start: 20140227, end: 20140304
  2. ARTIST [Concomitant]
     Route: 048
     Dates: start: 20140305, end: 20140305
  3. ARTIST [Concomitant]
     Route: 048
     Dates: start: 20140306, end: 20140311
  4. ALLOPURINOL [Concomitant]
     Route: 048
     Dates: start: 20140227, end: 20140304
  5. ALLOPURINOL [Concomitant]
     Route: 048
     Dates: start: 20140305, end: 20140305
  6. ALLOPURINOL [Concomitant]
     Route: 048
     Dates: start: 20140306, end: 20140311
  7. ALLOPURINOL [Concomitant]
     Route: 048
     Dates: start: 20140313, end: 20140326
  8. ALLOPURINOL [Concomitant]
     Route: 048
  9. OLMETEC [Concomitant]
     Route: 048
     Dates: start: 20140227, end: 20140304
  10. OLMETEC [Concomitant]
     Route: 048
     Dates: start: 20140305, end: 20140305
  11. OLMETEC [Concomitant]
     Route: 048
     Dates: start: 20140306, end: 20140307
  12. OLMETEC [Concomitant]
     Route: 048
     Dates: start: 20140308, end: 20140311
  13. OLMETEC [Concomitant]
     Route: 048
     Dates: start: 20140312, end: 20140314
  14. SAMSCA [Concomitant]
     Route: 048
     Dates: start: 20140227, end: 20140304
  15. SAMSCA [Concomitant]
     Route: 048
     Dates: start: 20140305, end: 20140305
  16. SAMSCA [Concomitant]
     Route: 048
     Dates: start: 20140306, end: 20140311
  17. SAMSCA [Concomitant]
     Route: 048
     Dates: start: 20140313, end: 20140319
  18. CELLCEPT [Concomitant]
     Dosage: DOSE: 6 CAPSULES.
     Route: 048
     Dates: start: 20140227, end: 20140304
  19. CELLCEPT [Concomitant]
     Dosage: DOSE: 12 CAPSULES.
     Route: 048
     Dates: start: 20140305, end: 20140305
  20. CELLCEPT [Concomitant]
     Dosage: DOSE: 6 CAPSULES.
     Route: 048
     Dates: start: 20140306, end: 20140311
  21. CELLCEPT [Concomitant]
     Dosage: DOSE: 6 CAPSULES.
     Route: 048
     Dates: start: 20140313, end: 20140326
  22. TRICHLORMETHIAZIDE [Concomitant]
     Route: 048
     Dates: start: 20140227, end: 20140303
  23. TRICHLORMETHIAZIDE [Concomitant]
     Route: 048
     Dates: start: 20140304, end: 20140305
  24. TRICHLORMETHIAZIDE [Concomitant]
     Route: 048
     Dates: start: 20140306, end: 20140311
  25. BAKTAR [Concomitant]
     Dosage: DOSE: 0.5 TABLET.
     Route: 048
     Dates: start: 20140227, end: 20140304
  26. BAKTAR [Concomitant]
     Dosage: DOSE: 1.0 TABLET.
     Route: 048
     Dates: start: 20140305, end: 20140305
  27. BAKTAR [Concomitant]
     Dosage: DOSE: 0.5 TABLET.
     Route: 048
     Dates: start: 20140306, end: 20140311
  28. BAKTAR [Concomitant]
     Dosage: DOSE: 0.5 TABLET.
     Route: 048
     Dates: start: 20140313, end: 20140326
  29. BARACLUDE [Concomitant]
     Route: 048
     Dates: start: 20140227, end: 20140228
  30. BARACLUDE [Concomitant]
     Route: 048
     Dates: start: 20140305, end: 20140306
  31. BARACLUDE [Concomitant]
     Route: 048
     Dates: start: 20140313, end: 20140314
  32. BARACLUDE [Concomitant]
     Route: 048
     Dates: start: 20140320, end: 20140321
  33. VALIXA [Concomitant]
     Route: 048
     Dates: start: 20140227, end: 20140301
  34. VALIXA [Concomitant]
     Route: 048
     Dates: start: 20140304, end: 20140308
  35. VFEND [Concomitant]
     Route: 048
     Dates: start: 20140227, end: 20140304
  36. VFEND [Concomitant]
     Route: 048
     Dates: start: 20140305, end: 20140305
  37. VFEND [Concomitant]
     Route: 048
     Dates: start: 20140306, end: 20140311
  38. VFEND [Concomitant]
     Route: 048
     Dates: start: 20140313, end: 20140326
  39. ROXITHROMYCIN [Concomitant]
     Route: 048
     Dates: start: 20140227, end: 20140304
  40. ROXITHROMYCIN [Concomitant]
     Route: 048
     Dates: start: 20140305, end: 20140305
  41. ROXITHROMYCIN [Concomitant]
     Route: 048
     Dates: start: 20140306, end: 20140311
  42. NITRODERM TTS (NITROGLYCERIN) [Concomitant]
     Dosage: 1 SHEET. PRENTERAL.
     Route: 065
     Dates: start: 20140227, end: 20140304
  43. NITRODERM TTS (NITROGLYCERIN) [Concomitant]
     Dosage: 2 SHEET. PRENTERAL.
     Route: 065
     Dates: start: 20140305, end: 20140305
  44. NITRODERM TTS (NITROGLYCERIN) [Concomitant]
     Dosage: 1 SHEET. PRENTERAL.
     Route: 065
     Dates: start: 20140306, end: 20140311
  45. NITRODERM TTS (NITROGLYCERIN) [Concomitant]
     Dosage: 1 SHEET. PRENTERAL.
     Route: 065
     Dates: start: 20140313, end: 20140326
  46. PASIL [Concomitant]
     Dosage: BEFORE: 28/FEB/2014.
     Route: 042
  47. SAXIZON [Concomitant]
     Route: 041
     Dates: start: 20140228, end: 20140228
  48. SAXIZON [Concomitant]
     Route: 041
     Dates: start: 20140302, end: 20140302
  49. SAXIZON [Concomitant]
     Route: 041
     Dates: start: 20140304, end: 20140305
  50. SAXIZON [Concomitant]
     Route: 041
     Dates: start: 20140306
  51. SAXIZON [Concomitant]
     Route: 041
     Dates: start: 20140307, end: 20140308
  52. SAXIZON [Concomitant]
     Route: 041
     Dates: start: 20140310, end: 20140312
  53. SAXIZON [Concomitant]
     Route: 041
     Dates: start: 20140314, end: 20140314
  54. SAXIZON [Concomitant]
     Route: 041
     Dates: start: 20140316, end: 20140317
  55. SAXIZON [Concomitant]
     Route: 041
     Dates: start: 20140319, end: 20140319
  56. CRAVIT [Concomitant]
     Route: 031
     Dates: start: 20140306, end: 20140306
  57. CRAVIT [Concomitant]
     Route: 031
     Dates: start: 20140318, end: 20140318
  58. DISTILLED WATER [Concomitant]
     Dosage: PARENTERAL.
     Route: 065
     Dates: start: 20140306, end: 20140306
  59. DISTILLED WATER [Concomitant]
     Dosage: PARENTERAL.
     Route: 065
     Dates: start: 20140310, end: 20140310
  60. DISTILLED WATER [Concomitant]
     Dosage: PARENTERAL.
     Route: 065
     Dates: start: 20140311, end: 20140313
  61. DISTILLED WATER [Concomitant]
     Dosage: PARENTERAL.
     Route: 065
     Dates: start: 20140317, end: 20140317
  62. DISTILLED WATER [Concomitant]
     Dosage: PARENTERAL.
     Route: 065
     Dates: start: 20140318, end: 20140318
  63. DISTILLED WATER [Concomitant]
     Dosage: PARENTERAL.
     Route: 065
     Dates: start: 20140319, end: 20140319
  64. DISTILLED WATER [Concomitant]
     Dosage: PARENTERAL.
     Route: 065
     Dates: start: 20140320, end: 20140322
  65. NORVASC [Concomitant]
     Route: 048
     Dates: start: 20140310, end: 20140314
  66. NORVASC [Concomitant]
     Route: 048
     Dates: start: 20140310, end: 20140326
  67. MICOMBI COMBINATION [Concomitant]
     Dosage: 1 TABLET.
     Route: 048
     Dates: start: 20140310, end: 20140314
  68. DENOSINE [Suspect]
     Indication: CYTOMEGALOVIRUS CHORIORETINITIS
     Route: 031
  69. DENOSINE [Suspect]
     Route: 031
     Dates: end: 20140310
  70. DENOSINE [Suspect]
     Route: 031
     Dates: end: 20140317
  71. DENOSINE [Suspect]
     Route: 031
     Dates: end: 20140319
  72. FOSCAVIR [Suspect]
     Indication: CYTOMEGALOVIRUS CHORIORETINITIS
     Route: 041
     Dates: start: 20140306
  73. PERDIPINE [Concomitant]
     Indication: HYPERTENSION
     Route: 041
  74. HANP [Concomitant]
     Indication: HYPERTENSION
     Route: 041
  75. GRAN [Concomitant]
     Route: 058
  76. GRAN [Concomitant]
     Route: 058
     Dates: start: 20140228, end: 20140228
  77. GRAN [Concomitant]
     Route: 058
     Dates: start: 20140303, end: 20140322
  78. FUROSEMIDE [Concomitant]
     Route: 042
  79. SOLDACTONE [Concomitant]
     Route: 042
  80. SOLDACTONE [Concomitant]
     Route: 042
     Dates: start: 20140227, end: 20140303
  81. SOLDACTONE [Concomitant]
     Route: 042
     Dates: start: 20140304, end: 20140306
  82. SOLDACTONE [Concomitant]
     Route: 042
     Dates: start: 20140308, end: 20140308
  83. SOLDACTONE [Concomitant]
     Route: 042
     Dates: start: 20140319, end: 20140319

REACTIONS (3)
  - Convulsion [Recovering/Resolving]
  - Depressed level of consciousness [Unknown]
  - Off label use [Unknown]
